FAERS Safety Report 24947730 (Version 1)
Quarter: 2025Q1

REPORT INFORMATION
  Report Type: Report from Study
  Country: US (occurrence: US)
  Receive Date: 20250210
  Receipt Date: 20250210
  Transmission Date: 20250409
  Serious: Yes (Other)
  Sender: ABBVIE
  Company Number: US-ABBVIE-6120986

PATIENT
  Age: 62 Year
  Sex: Male

DRUGS (1)
  1. SKYRIZI [Suspect]
     Active Substance: RISANKIZUMAB-RZAA
     Indication: Product used for unknown indication
     Route: 058
     Dates: start: 20230615

REACTIONS (5)
  - Hip fracture [Recovering/Resolving]
  - Hip fracture [Recovered/Resolved]
  - Hip fracture [Recovering/Resolving]
  - Spinal fracture [Unknown]
  - Accident [Unknown]

NARRATIVE: CASE EVENT DATE: 20230701
